FAERS Safety Report 5338956-5 (Version None)
Quarter: 2007Q2

REPORT INFORMATION
  Report Type: 
  Country: None (occurrence: None)
  Receive Date: 20070530
  Receipt Date: 20070518
  Transmission Date: 20071010
  Serious: Yes (Other)
  Sender: FDA-Public Use
  Company Number: DE-PFIZER INC-2007031802

PATIENT
  Sex: Female

DRUGS (1)
  1. CHAMPIX [Suspect]
     Indication: EX-SMOKER
     Route: 048
     Dates: start: 20070313, end: 20070322

REACTIONS (10)
  - ABDOMINAL PAIN [None]
  - BURNING SENSATION [None]
  - DRY SKIN [None]
  - DYSPNOEA [None]
  - ERYTHEMA [None]
  - LOCAL SWELLING [None]
  - NAUSEA [None]
  - PRURITUS [None]
  - SWELLING FACE [None]
  - VOMITING [None]
